FAERS Safety Report 9416629 (Version 2)
Quarter: 2013Q3

REPORT INFORMATION
  Report Type: Spontaneous
  Country: US (occurrence: US)
  Receive Date: 20130724
  Receipt Date: 20130802
  Transmission Date: 20140515
  Serious: Yes (Hospitalization, Other)
  Sender: FDA-Public Use
  Company Number: US-BAXTER-2013BAX027687

PATIENT
  Age: 73 Year
  Sex: Female

DRUGS (1)
  1. DIANEAL LOW CALCIUM [Suspect]
     Indication: PERITONEAL DIALYSIS
     Route: 033
     Dates: start: 201008

REACTIONS (3)
  - Confusional state [Recovering/Resolving]
  - Urinary tract infection [Recovering/Resolving]
  - Hypotension [Recovering/Resolving]
